FAERS Safety Report 18444502 (Version 1)
Quarter: 2020Q4

REPORT INFORMATION
  Report Type: Spontaneous
  Country: LB (occurrence: LB)
  Receive Date: 20201030
  Receipt Date: 20201030
  Transmission Date: 20210114
  Serious: Yes (Death, Other)
  Sender: FDA-Public Use
  Company Number: LB-ALKEM LABORATORIES LIMITED-LB-ALKEM-2020-07346

PATIENT
  Age: 72 Year
  Sex: Male

DRUGS (1)
  1. LANSOPRAZOLE. [Suspect]
     Active Substance: LANSOPRAZOLE
     Indication: PRODUCT USED FOR UNKNOWN INDICATION
     Dosage: UNK
     Route: 065

REACTIONS (3)
  - Fixed eruption [Unknown]
  - Multiple organ dysfunction syndrome [Fatal]
  - Toxic epidermal necrolysis [Unknown]
